FAERS Safety Report 5195625-2 (Version None)
Quarter: 2007Q1

REPORT INFORMATION
  Report Type: 
  Country: None (occurrence: None)
  Receive Date: 20070102
  Receipt Date: 20061226
  Transmission Date: 20070707
  Serious: Yes (Life-Threatening)
  Sender: FDA-Public Use
  Company Number: JP-AVENTIS-200613892JP

PATIENT
  Age: 65 Year
  Sex: Male
  Weight: 64 kg

DRUGS (10)
  1. AMARYL [Suspect]
     Indication: DIABETES MELLITUS
     Route: 048
     Dates: start: 20050201, end: 20061202
  2. AMARYL [Suspect]
     Route: 048
     Dates: start: 20061205, end: 20061205
  3. GLUCOBAY [Concomitant]
     Indication: DIABETES MELLITUS
     Dosage: FREQUENCY: BEFORE MEALS
     Route: 048
     Dates: start: 20050201
  4. ASPHANATE [Concomitant]
     Indication: CEREBRAL INFARCTION
     Route: 048
     Dates: start: 20050201
  5. OLMETEC [Concomitant]
     Indication: HYPERTENSION
     Route: 048
     Dates: start: 20050201
  6. DIGOXIN [Concomitant]
     Indication: CARDIAC FAILURE CHRONIC
     Route: 048
     Dates: start: 20050201
  7. BIELUZON S MARUKO [Concomitant]
     Indication: CEREBRAL INFARCTION
     Route: 048
     Dates: start: 20050201
  8. SORNILART TAIYO [Concomitant]
     Indication: GASTRITIS
     Route: 048
     Dates: start: 20050201
  9. AMOBAN [Concomitant]
     Indication: INSOMNIA
     Dosage: DOSE: 1 TABLET
     Route: 048
     Dates: start: 20060502
  10. NIFEDIPINE [Concomitant]
     Indication: HYPERTENSION
     Route: 048
     Dates: start: 20060810

REACTIONS (4)
  - ANOREXIA [None]
  - HYPOGLYCAEMIA [None]
  - HYPOGLYCAEMIC COMA [None]
  - RENAL IMPAIRMENT [None]
